FAERS Safety Report 11457341 (Version 2)
Quarter: 2015Q3

REPORT INFORMATION
  Report Type: Report from Study
  Country: DE (occurrence: DE)
  Receive Date: 20150904
  Receipt Date: 20150928
  Transmission Date: 20151125
  Serious: Yes (Other)
  Sender: FDA-Public Use
  Company Number: PHHY2015DE055621

PATIENT
  Sex: Male
  Weight: 79 kg

DRUGS (6)
  1. METOPROLOL [Concomitant]
     Active Substance: METOPROLOL
     Dosage: 75 MG, QD
     Route: 048
     Dates: start: 20140801
  2. METOPROLOL [Concomitant]
     Active Substance: METOPROLOL
     Indication: HYPERTENSION
     Dosage: 180 MG, UNK
     Route: 065
     Dates: start: 20120721
  3. RAMIPRIL. [Concomitant]
     Active Substance: RAMIPRIL
     Indication: HYPERTENSION
     Dosage: 5 MG, QD
     Route: 048
     Dates: start: 20140801
  4. DOXAZOSINE [Concomitant]
     Active Substance: DOXAZOSIN MESYLATE
     Indication: HYPERTENSION
     Dosage: 4 MG, QD
     Route: 065
     Dates: start: 20140801
  5. AFINITOR [Suspect]
     Active Substance: EVEROLIMUS
     Indication: METASTATIC RENAL CELL CARCINOMA
     Dosage: 10 MG, QD
     Route: 048
     Dates: start: 20150311
  6. TORASEMIDE [Concomitant]
     Active Substance: TORSEMIDE
     Indication: HYPERTENSION
     Dosage: 10 MG, QD
     Route: 048
     Dates: start: 20140801

REACTIONS (14)
  - Cheilitis [Recovered/Resolved]
  - Epistaxis [Not Recovered/Not Resolved]
  - Insomnia [Recovered/Resolved]
  - Gastrointestinal haemorrhage [Recovered/Resolved]
  - Dysuria [Recovered/Resolved]
  - Haemoglobin decreased [Unknown]
  - Malaise [Recovered/Resolved]
  - Eyelid oedema [Recovered/Resolved]
  - Muscular weakness [Recovered/Resolved]
  - Cough [Recovered/Resolved]
  - Haemoptysis [Recovered/Resolved]
  - Weight decreased [Unknown]
  - Melaena [Recovered/Resolved]
  - General physical health deterioration [Recovered/Resolved]

NARRATIVE: CASE EVENT DATE: 20150316
